FAERS Safety Report 24353209 (Version 1)
Quarter: 2024Q3

REPORT INFORMATION
  Report Type: Spontaneous
  Country: CN (occurrence: CN)
  Receive Date: 20240923
  Receipt Date: 20240923
  Transmission Date: 20241017
  Serious: No
  Sender: ROCHE
  Company Number: CN-ROCHE-3451171

PATIENT
  Age: 69 Year
  Sex: Male
  Weight: 61.0 kg

DRUGS (4)
  1. HERCEPTIN [Suspect]
     Active Substance: TRASTUZUMAB
     Indication: Gastric cancer
     Route: 041
     Dates: start: 20231025, end: 20231025
  2. OXALIPLATIN [Concomitant]
     Active Substance: OXALIPLATIN
     Dates: start: 20231025
  3. GIMERACIL\OTERACIL\TEGAFUR [Concomitant]
     Active Substance: GIMERACIL\OTERACIL POTASSIUM\TEGAFUR
     Dates: start: 20231025
  4. SINTILIMAB [Concomitant]
     Active Substance: SINTILIMAB
     Dates: start: 20231025

REACTIONS (1)
  - Infusion related reaction [Recovered/Resolved]

NARRATIVE: CASE EVENT DATE: 20231025
